FAERS Safety Report 10048452 (Version 1)
Quarter: 2014Q1

REPORT INFORMATION
  Report Type: Spontaneous
  Country: BR (occurrence: BR)
  Receive Date: 20140331
  Receipt Date: 20140331
  Transmission Date: 20141002
  Serious: Yes (Hospitalization)
  Sender: FDA-Public Use
  Company Number: BR-PFIZER INC-2014086945

PATIENT
  Age: 24 Year
  Sex: Male
  Weight: 84 kg

DRUGS (4)
  1. LYRICA [Suspect]
     Indication: SPINAL PAIN
     Dosage: 1 TABLET (75MG) EVERY 12 HOURS
     Route: 048
     Dates: start: 20140126
  2. AMITRIPTYLINE [Concomitant]
     Indication: SLEEP DISORDER
     Dosage: 1 TABLET AT NIGHT
  3. ETNA [Concomitant]
     Indication: PAIN
     Dosage: UNK
  4. TYLEX [Concomitant]
     Indication: PAIN
     Dosage: UNK

REACTIONS (1)
  - Spinal pain [Unknown]
